FAERS Safety Report 4954064-7 (Version None)
Quarter: 2006Q1

REPORT INFORMATION
  Report Type: 
  Country: None (occurrence: None)
  Receive Date: 20060322
  Receipt Date: 20060315
  Transmission Date: 20060701
  Serious: Yes (Hospitalization)
  Sender: FDA-Public Use
  Company Number: 2006003991

PATIENT
  Age: 41 Year
  Sex: Male
  Weight: 119 kg

DRUGS (15)
  1. GENOTROPIN [Suspect]
     Indication: HYPOPITUITARISM
     Dosage: SEE IMAGE
     Route: 058
     Dates: start: 20030730, end: 20031118
  2. GENOTROPIN [Suspect]
     Indication: HYPOPITUITARISM
     Dosage: SEE IMAGE
     Route: 058
     Dates: start: 20040121, end: 20040304
  3. GENOTROPIN [Suspect]
     Indication: HYPOPITUITARISM
     Dosage: SEE IMAGE
     Route: 058
     Dates: start: 20040305
  4. MECOBALAMIN (MECOBALAMIN) [Concomitant]
  5. PREDNISOLONE [Concomitant]
  6. ADENOSINE TRIPHOSPHATE, DISODIUM SALT (ADENOSINE TRIPHOSPHATE, DISODIU [Concomitant]
  7. BETAHISTINE MESILATE (BETAHISTINE MESILATE) [Concomitant]
  8. OFLOXACIN [Concomitant]
  9. FLUTICASONE PROPIONATE [Concomitant]
  10. LORATADINE [Concomitant]
  11. CORTISONE ACETATE [Concomitant]
  12. LEVOTHYROXINE SODIUM [Concomitant]
  13. DESMOPRESSIN ACETATE (DESMOPRESSIN ACETATE) [Concomitant]
  14. ROXATIDINE ACETATE HCL [Concomitant]
  15. VALPROATE SODIUM [Concomitant]

REACTIONS (3)
  - DELUSION [None]
  - HALLUCINATION, AUDITORY [None]
  - THERAPY NON-RESPONDER [None]
